FAERS Safety Report 8067072-7 (Version None)
Quarter: 2012Q1

REPORT INFORMATION
  Report Type: 
  Country: None (occurrence: None)
  Receive Date: 20120124
  Receipt Date: 20120119
  Transmission Date: 20120608
  Serious: Yes (Other)
  Sender: FDA-Public Use
  Company Number: US-JNJFOC-20120102803

PATIENT
  Age: 30 Year
  Sex: Female

DRUGS (2)
  1. ULTRACET [Concomitant]
     Indication: PAIN
     Route: 065
  2. PRECISE EXTRA STRENGTH PAIN RELIEVING CREAM [Suspect]
     Indication: MUSCULOSKELETAL PAIN
     Dosage: A NICKEL-SIZED AMOUNT
     Route: 061
     Dates: start: 20120104, end: 20120105

REACTIONS (5)
  - APPLICATION SITE SCAR [None]
  - PRODUCT QUALITY ISSUE [None]
  - APPLICATION SITE EXFOLIATION [None]
  - APPLICATION SITE DISCOLOURATION [None]
  - APPLICATION SITE BURN [None]
